FAERS Safety Report 11375568 (Version 1)
Quarter: 2015Q3

REPORT INFORMATION
  Report Type: Spontaneous
  Country: GB (occurrence: GB)
  Receive Date: 20150813
  Receipt Date: 20150813
  Transmission Date: 20151125
  Serious: Yes (Other)
  Sender: FDA-Public Use
  Company Number: GB-SA-2015SA119125

PATIENT
  Age: 58 Year
  Sex: Female
  Weight: 80 kg

DRUGS (3)
  1. EVOREL CONTI [Concomitant]
  2. IRBESARTAN. [Suspect]
     Active Substance: IRBESARTAN
     Indication: ESSENTIAL HYPERTENSION
     Route: 048
     Dates: start: 20140613, end: 20150721
  3. CANDESARTAN [Suspect]
     Active Substance: CANDESARTAN
     Indication: ESSENTIAL HYPERTENSION
     Route: 048
     Dates: start: 20150722, end: 20150723

REACTIONS (3)
  - Oral lichen planus [Unknown]
  - Oral mucosal blistering [Recovered/Resolved]
  - Lichen planus [Recovering/Resolving]

NARRATIVE: CASE EVENT DATE: 20140730
